FAERS Safety Report 20635768 (Version 1)
Quarter: 2022Q1

REPORT INFORMATION
  Report Type: Spontaneous
  Country: FR (occurrence: None)
  Receive Date: 20220325
  Receipt Date: 20220325
  Transmission Date: 20220423
  Serious: No
  Sender: FDA-Public Use
  Company Number: FR-Spark Therapeutics, Inc.-FR-SPK-21-00125

PATIENT
  Age: 38 Year
  Sex: Female

DRUGS (4)
  1. LUXTURNA [Suspect]
     Active Substance: VORETIGENE NEPARVOVEC-RZYL
     Indication: Product used for unknown indication
     Dates: start: 20190522, end: 20190522
  2. LUXTURNA [Suspect]
     Active Substance: VORETIGENE NEPARVOVEC-RZYL
     Dates: start: 20210529
  3. LUXTURNA [Suspect]
     Active Substance: VORETIGENE NEPARVOVEC-RZYL
     Indication: Product used for unknown indication
     Dates: start: 20190522, end: 20190522
  4. LUXTURNA [Suspect]
     Active Substance: VORETIGENE NEPARVOVEC-RZYL
     Dates: start: 20210529

REACTIONS (1)
  - Chorioretinal atrophy [Unknown]

NARRATIVE: CASE EVENT DATE: 20191101
